FAERS Safety Report 8926200 (Version 2)
Quarter: 2012Q4

REPORT INFORMATION
  Report Type: 
  Country: US (occurrence: US)
  Receive Date: 20121126
  Receipt Date: 20121218
  Transmission Date: 20130627
  Serious: Yes (Hospitalization, Other)
  Sender: FDA-Public Use
  Company Number: US-BAXTER-2012BAX024172

PATIENT
  Age: 79 Year
  Sex: Female

DRUGS (1)
  1. DIANEAL LOW CALCIUM (ULTRABAG) [Suspect]
     Indication: PERITONEAL DIALYSIS
     Route: 033

REACTIONS (2)
  - Fall [Recovering/Resolving]
  - Asthenia [Recovering/Resolving]
